FAERS Safety Report 9435975 (Version 1)
Quarter: 2013Q3

REPORT INFORMATION
  Report Type: Spontaneous
  Country: US (occurrence: US)
  Receive Date: 20130801
  Receipt Date: 20130801
  Transmission Date: 20140515
  Serious: No
  Sender: FDA-Public Use
  Company Number: US-009507513-1308USA000192

PATIENT
  Sex: Female

DRUGS (1)
  1. MIRALAX [Suspect]
     Indication: COLONOSCOPY
     Dosage: UNK, QH
     Route: 048
     Dates: start: 20130722

REACTIONS (4)
  - Dizziness [Unknown]
  - Malaise [Unknown]
  - Overdose [Unknown]
  - Off label use [Unknown]
